FAERS Safety Report 8576137-2 (Version None)
Quarter: 2012Q3

REPORT INFORMATION
  Report Type: 
  Country: None (occurrence: None)
  Receive Date: 20120807
  Receipt Date: 20120730
  Transmission Date: 20120928
  Serious: Yes (Other)
  Sender: FDA-Public Use
  Company Number: CA-JNJFOC-20120800529

PATIENT
  Sex: Male
  Weight: 80.4 kg

DRUGS (3)
  1. REMICADE [Suspect]
     Route: 042
     Dates: start: 20070101
  2. REMICADE [Suspect]
     Indication: COLITIS ULCERATIVE
     Dosage: 34TH INFUSION
     Route: 042
     Dates: start: 20120730
  3. SOLU-CORTEF [Concomitant]
     Indication: PREMEDICATION
     Route: 042

REACTIONS (1)
  - MOUTH CYST [None]
